FAERS Safety Report 23944727 (Version 1)
Quarter: 2024Q2

REPORT INFORMATION
  Report Type: Spontaneous
  Country: CN (occurrence: CN)
  Receive Date: 20240606
  Receipt Date: 20240606
  Transmission Date: 20240716
  Serious: Yes (Hospitalization, Other)
  Sender: FDA-Public Use
  Company Number: None

PATIENT
  Age: 48 Year
  Sex: Female
  Weight: 55 kg

DRUGS (6)
  1. CYCLOPHOSPHAMIDE [Suspect]
     Active Substance: CYCLOPHOSPHAMIDE
     Indication: Breast cancer female
     Dosage: 900 MG, ONE TIME IN ONE DAY, D1, DILUTED WITH 100 ML OF 0.9 % SODIUM CHLORIDE
     Route: 041
     Dates: start: 20240510, end: 20240510
  2. SODIUM CHLORIDE [Suspect]
     Active Substance: SODIUM CHLORIDE
     Indication: Medication dilution
     Dosage: 100 ML, ONE TIME IN ONE DAY, D1, DOSAGE FORM: INJECTION, STRENGTH: 0.9%, USED TO DILUTE 900 MG OF CY
     Route: 041
     Dates: start: 20240510, end: 20240510
  3. DEXTROSE [Suspect]
     Active Substance: DEXTROSE\DEXTROSE MONOHYDRATE
     Indication: Medication dilution
     Dosage: 100 ML, ONE TIME IN ONE DAY, D1, DOSAGE FORM: INJECTION, STRENGTH: 5 %, USED TO DILUTE 90 MG OF PIRA
     Route: 041
     Dates: start: 20240510, end: 20240510
  4. PIRARUBICIN HYDROCHLORIDE [Suspect]
     Active Substance: PIRARUBICIN HYDROCHLORIDE
     Indication: Breast cancer female
     Dosage: 90 MG, ONE TIME IN ONE DAY, D1, DILUTED WITH 100 ML OF 5 % GLUCOSE
     Route: 041
     Dates: start: 20240510, end: 20240510
  5. PEGYLATED GRANULOCYTE COLONY-STIMULATING FACTOR [Suspect]
     Active Substance: PEGYLATED GRANULOCYTE COLONY-STIMULATING FACTOR
     Indication: Granulocytopenia
     Dosage: 6 MG, ST, AFTER CHEMOTHERAPY, START DATE: MAY-2024
     Route: 058
  6. PEGYLATED GRANULOCYTE COLONY-STIMULATING FACTOR [Suspect]
     Active Substance: PEGYLATED GRANULOCYTE COLONY-STIMULATING FACTOR
     Indication: Prophylaxis

REACTIONS (1)
  - Myelosuppression [Recovered/Resolved]

NARRATIVE: CASE EVENT DATE: 20240516
